FAERS Safety Report 6034661-0 (Version None)
Quarter: 2009Q1

REPORT INFORMATION
  Report Type: 
  Country: None (occurrence: None)
  Receive Date: 20090109
  Receipt Date: 20090109
  Transmission Date: 20090719
  Serious: No
  Sender: FDA-Public Use
  Company Number: None

PATIENT
  Sex: Female

DRUGS (5)
  1. ZOMETA [Suspect]
     Indication: BREAST CANCER
     Dosage: 4 MG MONTHLY IV
     Route: 042
     Dates: start: 20020101, end: 20030101
  2. RADIATION THERAPY [Concomitant]
  3. CYTOXAN [Concomitant]
  4. TAMOXIFEN CITRATE [Concomitant]
  5. DECADRON [Concomitant]

REACTIONS (2)
  - JAW DISORDER [None]
  - ORAL TORUS [None]
